FAERS Safety Report 25386920 (Version 4)
Quarter: 2025Q3

REPORT INFORMATION
  Report Type: Spontaneous
  Country: US (occurrence: US)
  Receive Date: 20250602
  Receipt Date: 20250722
  Transmission Date: 20251020
  Serious: Yes (Other)
  Sender: PFIZER
  Company Number: US-PFIZER INC-202500111676

PATIENT
  Age: 51 Year
  Sex: Male

DRUGS (2)
  1. VELSIPITY [Suspect]
     Active Substance: ETRASIMOD ARGININE
  2. VELSIPITY [Suspect]
     Active Substance: ETRASIMOD ARGININE
     Dates: start: 202506

REACTIONS (8)
  - Hypotension [Unknown]
  - Stomatitis [Unknown]
  - Aphthous ulcer [Unknown]
  - Decreased appetite [Unknown]
  - Appetite disorder [Unknown]
  - Diarrhoea [Unknown]
  - Nausea [Unknown]
  - Constipation [Unknown]
